FAERS Safety Report 5765211-1 (Version None)
Quarter: 2008Q2

REPORT INFORMATION
  Report Type: 
  Country: None (occurrence: None)
  Receive Date: 20080611
  Receipt Date: 20080604
  Transmission Date: 20081010
  Serious: Yes (Other)
  Sender: FDA-Public Use
  Company Number: US-WYE-H04376408

PATIENT
  Age: 60 Year
  Sex: Male
  Weight: 54.48 kg

DRUGS (3)
  1. PROTONIX [Suspect]
     Indication: GASTROOESOPHAGEAL REFLUX DISEASE
     Route: 048
     Dates: start: 20030101
  2. HYDROCODONE [Concomitant]
     Indication: NECK INJURY
     Dosage: UNKNOWN
  3. AMBIEN [Suspect]
     Dosage: UNKNOWN

REACTIONS (3)
  - DIZZINESS [None]
  - HEART RATE INCREASED [None]
  - LOSS OF CONSCIOUSNESS [None]
